FAERS Safety Report 5968731-X (Version None)
Quarter: 2008Q4

REPORT INFORMATION
  Report Type: 
  Country: None (occurrence: None)
  Receive Date: 20081121
  Receipt Date: 20081121
  Transmission Date: 20090506
  Serious: Yes (Disabling)
  Sender: FDA-Public Use
  Company Number: None

PATIENT
  Age: 69 Year
  Sex: Female
  Weight: 78 kg

DRUGS (1)
  1. LEVAQUIN [Suspect]
     Indication: PREVENTIVE SURGERY
     Dosage: 500 MG OT IV DRIP
     Route: 041
     Dates: start: 20081119, end: 20081119

REACTIONS (3)
  - ERYTHEMA [None]
  - FEELING HOT [None]
  - PAIN [None]
